FAERS Safety Report 14585322 (Version 1)
Quarter: 2018Q1

REPORT INFORMATION
  Report Type: Spontaneous
  Country: US (occurrence: US)
  Receive Date: 20180301
  Receipt Date: 20180301
  Transmission Date: 20180509
  Serious: No
  Sender: FDA-Public Use
  Company Number: US-TEVA-2018-US-864951

PATIENT

DRUGS (1)
  1. DULOXETINE. [Suspect]
     Active Substance: DULOXETINE
     Dosage: 2 YEARS
     Route: 065

REACTIONS (11)
  - Agitation [Unknown]
  - Crying [Unknown]
  - Vomiting [Unknown]
  - Hyperhidrosis [Unknown]
  - Tremor [Unknown]
  - Thinking abnormal [Unknown]
  - Feeling abnormal [Unknown]
  - Blood pressure increased [Unknown]
  - Asthenia [Unknown]
  - Drug ineffective [Unknown]
  - Depression [Unknown]
